FAERS Safety Report 10019515 (Version 2)
Quarter: 2014Q1

REPORT INFORMATION
  Report Type: Spontaneous
  Country: US (occurrence: US)
  Receive Date: 20140318
  Receipt Date: 20140318
  Transmission Date: 20141002
  Serious: Yes (Life-Threatening)
  Sender: FDA-Public Use
  Company Number: US-BAXTER-2013BAX015186

PATIENT
  Age: 61 Year
  Sex: Male

DRUGS (1)
  1. DOPAMINE HYDROCHLORIDE AND 5% DEXTROSE INJECTION, USP [Suspect]
     Indication: CAROTID ARTERY DISEASE
     Route: 042

REACTIONS (4)
  - Hypotension [Unknown]
  - Device infusion issue [Unknown]
  - Headache [Unknown]
  - Nausea [Unknown]
